FAERS Safety Report 5166753-2 (Version None)
Quarter: 2006Q4

REPORT INFORMATION
  Report Type: 
  Country: None (occurrence: None)
  Receive Date: 20061129
  Receipt Date: 20061117
  Transmission Date: 20070319
  Serious: Yes (Hospitalization, Other)
  Sender: FDA-Public Use
  Company Number: JP-2006-036620

PATIENT
  Age: 27 Year
  Sex: Female

DRUGS (2)
  1. SOTALOL HYDROCHLORIDE [Suspect]
     Indication: TACHYCARDIA FOETAL
     Dosage: ORAL
     Route: 048
  2. DIGITALIS PURPUREA (DIGITALIS PURPUREA) [Concomitant]

REACTIONS (4)
  - BRADYCARDIA FOETAL [None]
  - DRUG EXPOSURE DURING PREGNANCY [None]
  - INTRA-UTERINE DEATH [None]
  - UTERINE CONTRACTIONS ABNORMAL [None]
